FAERS Safety Report 7475235-4 (Version None)
Quarter: 2011Q2

REPORT INFORMATION
  Report Type: 
  Country: None (occurrence: None)
  Receive Date: 20110509
  Receipt Date: 20110509
  Transmission Date: 20111010
  Serious: Yes (Other)
  Sender: FDA-Public Use
  Company Number: None

PATIENT
  Sex: Female
  Weight: 61.2356 kg

DRUGS (2)
  1. RECLAST [Suspect]
     Indication: OSTEOPOROSIS
     Dosage: 5MG YEARLY IV
     Route: 042
     Dates: start: 20091216
  2. RECLAST [Suspect]
     Indication: OSTEOPOROSIS
     Dosage: 5MG YEARLY IV
     Route: 042
     Dates: start: 20101228

REACTIONS (1)
  - FEMUR FRACTURE [None]
